FAERS Safety Report 12406374 (Version 1)
Quarter: 2016Q2

REPORT INFORMATION
  Report Type: Spontaneous
  Country: FR (occurrence: FR)
  Receive Date: 20160526
  Receipt Date: 20160526
  Transmission Date: 20160815
  Serious: Yes (Hospitalization)
  Sender: FDA-Public Use
  Company Number: FR-JNJFOC-20160519907

PATIENT
  Age: 49 Year
  Sex: Female

DRUGS (2)
  1. RIFINAH [Concomitant]
     Active Substance: ISONIAZID\RIFAMPIN
     Indication: MYCOBACTERIUM TUBERCULOSIS COMPLEX TEST POSITIVE
     Route: 065
  2. SIMPONI [Suspect]
     Active Substance: GOLIMUMAB
     Indication: ANKYLOSING SPONDYLITIS
     Route: 058

REACTIONS (6)
  - Pleurisy [Unknown]
  - Pericarditis [Unknown]
  - Nephrotic syndrome [Unknown]
  - Hypersensitivity [Unknown]
  - Acute kidney injury [Unknown]
  - Oedema peripheral [Unknown]
